FAERS Safety Report 4618611-7 (Version None)
Quarter: 2005Q1

REPORT INFORMATION
  Report Type: 
  Country: None (occurrence: None)
  Receive Date: 20050323
  Receipt Date: 20050308
  Transmission Date: 20050727
  Serious: Yes (Hospitalization)
  Sender: FDA-Public Use
  Company Number: 2005-0008125

PATIENT
  Age: 53 Year
  Sex: Female

DRUGS (4)
  1. HEPSERA [Suspect]
     Indication: HEPATITIS B
     Dosage: 10 MG, 1 IN 1 D, ORAL
     Route: 048
     Dates: start: 20050221, end: 20050227
  2. ZEFFIX (LAMIVUDINE) [Concomitant]
  3. NORVASC [Concomitant]
  4. LIPITOR [Concomitant]

REACTIONS (1)
  - THIRST [None]
